FAERS Safety Report 10028397 (Version 1)
Quarter: 2014Q1

REPORT INFORMATION
  Report Type: Spontaneous
  Country: US (occurrence: None)
  Receive Date: 20140307
  Receipt Date: 20140307
  Transmission Date: 20141002
  Serious: Yes (Other)
  Sender: FDA-Public Use
  Company Number: SYM-2014-18319

PATIENT
  Age: 37 Year
  Sex: Female

DRUGS (1)
  1. XENAZINE [Suspect]
     Indication: DYSTONIA
     Dosage: 12.5MG 3 IN 1 D, ORAL
     Route: 048
     Dates: start: 20131009

REACTIONS (1)
  - Hospitalisation [None]
